FAERS Safety Report 13630540 (Version 1)
Quarter: 2017Q2

REPORT INFORMATION
  Report Type: Spontaneous
  Country: US (occurrence: US)
  Receive Date: 20170531
  Receipt Date: 20170531
  Transmission Date: 20170830
  Serious: No
  Sender: FDA-Public Use
  Company Number: US-ASTELLAS-1310290

PATIENT
  Sex: Female

DRUGS (16)
  1. VITAMIN D3 [Concomitant]
     Active Substance: CHOLECALCIFEROL
  2. TARCEVA [Suspect]
     Active Substance: ERLOTINIB HYDROCHLORIDE
     Indication: LUNG NEOPLASM MALIGNANT
     Route: 048
     Dates: start: 20130315
  3. TARCEVA [Suspect]
     Active Substance: ERLOTINIB HYDROCHLORIDE
     Route: 048
     Dates: start: 20130621
  4. IPRATROPIUM [Concomitant]
     Active Substance: IPRATROPIUM
     Route: 065
  5. ECOTRIN [Concomitant]
     Active Substance: ASPIRIN
  6. VITAMIN C [Concomitant]
     Active Substance: ASCORBIC ACID
  7. XANAX [Concomitant]
     Active Substance: ALPRAZOLAM
  8. PLAVIX [Concomitant]
     Active Substance: CLOPIDOGREL BISULFATE
  9. DEXAMETHASONE. [Concomitant]
     Active Substance: DEXAMETHASONE
  10. ACYCLOVIR. [Concomitant]
     Active Substance: ACYCLOVIR
  11. TARCEVA [Suspect]
     Active Substance: ERLOTINIB HYDROCHLORIDE
     Route: 048
     Dates: start: 20130205
  12. TARCEVA [Suspect]
     Active Substance: ERLOTINIB HYDROCHLORIDE
     Dosage: FREQUENCY: 3 TABLETS BY MOUTH ONE TIME DAILY.
     Route: 048
  13. COUMADIN [Concomitant]
     Active Substance: WARFARIN SODIUM
  14. CRESTOR [Concomitant]
     Active Substance: ROSUVASTATIN CALCIUM
  15. TARCEVA [Suspect]
     Active Substance: ERLOTINIB HYDROCHLORIDE
     Route: 048
     Dates: start: 20141213
  16. ATENOLOL. [Concomitant]
     Active Substance: ATENOLOL

REACTIONS (13)
  - Dry skin [Unknown]
  - Oral herpes [Unknown]
  - Chapped lips [Unknown]
  - Diarrhoea [Unknown]
  - Pruritus [Unknown]
  - Ulcer [Unknown]
  - Eye pruritus [Unknown]
  - Rash [Unknown]
  - Ulcer haemorrhage [Unknown]
  - Dry eye [Unknown]
  - Lip dry [Unknown]
  - Dyspepsia [Unknown]
  - Alopecia [Unknown]
